FAERS Safety Report 5302578-2 (Version None)
Quarter: 2007Q2

REPORT INFORMATION
  Report Type: 
  Country: None (occurrence: None)
  Receive Date: 20070419
  Receipt Date: 20070413
  Transmission Date: 20071010
  Serious: Yes (Death, Hospitalization)
  Sender: FDA-Public Use
  Company Number: US-GENENTECH, INC.-238213

PATIENT
  Sex: Female

DRUGS (5)
  1. NO STUDY DRUG ADMINISTERED [Suspect]
     Indication: CHOROIDAL NEOVASCULARISATION
  2. KEFLEX [Concomitant]
     Indication: DRUG USE FOR UNKNOWN INDICATION
     Dosage: 500 MG, BID
  3. DIURESIS (UNK INGREDIENTS) [Concomitant]
     Indication: CHRONIC OBSTRUCTIVE PULMONARY DISEASE
  4. ADVAIR DISKUS 100/50 [Concomitant]
     Indication: CHRONIC OBSTRUCTIVE PULMONARY DISEASE
  5. TAMIFLU [Concomitant]
     Indication: INFLUENZA

REACTIONS (1)
  - ACUTE MYOCARDIAL INFARCTION [None]
